FAERS Safety Report 19670230 (Version 1)
Quarter: 2021Q3

REPORT INFORMATION
  Report Type: Report from Study
  Country: US (occurrence: US)
  Receive Date: 20210806
  Receipt Date: 20210806
  Transmission Date: 20211014
  Serious: Yes (Death, Hospitalization, Other)
  Sender: FDA-Public Use
  Company Number: US-GILEAD-2021-0543367

PATIENT
  Age: 41 Year
  Sex: Female

DRUGS (1)
  1. SACITUZUMAB GOVITECAN. [Suspect]
     Active Substance: SACITUZUMAB GOVITECAN
     Indication: BREAST CANCER
     Dosage: 288 UNITS
     Route: 065
     Dates: end: 202102

REACTIONS (5)
  - Pleural effusion [Unknown]
  - Metastases to bone [Unknown]
  - Neutrophil count decreased [Unknown]
  - Metastases to lung [Unknown]
  - Death [Fatal]

NARRATIVE: CASE EVENT DATE: 202106
